FAERS Safety Report 8497750-7 (Version None)
Quarter: 2012Q3

REPORT INFORMATION
  Report Type: 
  Country: None (occurrence: None)
  Receive Date: 20120709
  Receipt Date: 20120606
  Transmission Date: 20120928
  Serious: No
  Sender: FDA-Public Use
  Company Number: US-AMGEN-USASP2012035478

PATIENT
  Age: 37 Year
  Sex: Female

DRUGS (1)
  1. ENBREL [Suspect]
     Indication: PSORIATIC ARTHROPATHY
     Dosage: 50 MG, QWK
     Dates: start: 20040601

REACTIONS (8)
  - DRUG INEFFECTIVE [None]
  - PSORIASIS [None]
  - INFLUENZA [None]
  - DENTAL CARE [None]
  - THERAPEUTIC RESPONSE DELAYED [None]
  - TOOTH INFECTION [None]
  - RASH [None]
  - INFECTION [None]
